FAERS Safety Report 9238519 (Version 1)
Quarter: 2013Q1

REPORT INFORMATION
  Report Type: Spontaneous
  Country: US (occurrence: None)
  Receive Date: 20121106
  Receipt Date: 20121106
  Transmission Date: 20140127
  Serious: No
  Sender: FDA-Public Use
  Company Number: 1000039007

PATIENT
  Age: 76 Year
  Sex: Female

DRUGS (5)
  1. DALIRESP [Suspect]
     Indication: BRONCHITIS
     Dosage: 500 MCG (500 MCG, 1 IN 1 D), ORAL
     Route: 048
     Dates: start: 20120922
  2. DALIRESP [Suspect]
     Indication: ASTHMA
     Dosage: 500 MCG (500 MCG, 1 IN 1 D), ORAL
     Route: 048
     Dates: start: 20120922
  3. NEXIUM [Concomitant]
  4. SINGULAIR [Concomitant]
  5. DIOVAN (VALSARTAN) [Concomitant]

REACTIONS (2)
  - Nausea [None]
  - Headache [None]
